FAERS Safety Report 22522279 (Version 1)
Quarter: 2023Q2

REPORT INFORMATION
  Report Type: Spontaneous
  Country: KR (occurrence: KR)
  Receive Date: 20230605
  Receipt Date: 20230605
  Transmission Date: 20230721
  Serious: Yes (Hospitalization)
  Sender: FDA-Public Use
  Company Number: KR-ORGANON-O2305KOR003079

PATIENT
  Sex: Female

DRUGS (7)
  1. COZAAR [Suspect]
     Active Substance: LOSARTAN POTASSIUM
     Dosage: 1 FORMULATION 1 DAY
     Dates: start: 20171120
  2. BOTULINUM TOXIN TYPE A [Suspect]
     Active Substance: BOTULINUM TOXIN TYPE A
     Indication: Joint stiffness
     Dosage: 300 INTERNATIONAL UNIT
     Route: 030
     Dates: start: 20180123
  3. AMLODIPINE BESYLATE [Concomitant]
     Active Substance: AMLODIPINE BESYLATE
     Dosage: 1 FORMULATION 1 DAY
     Dates: start: 20171120
  4. ZOLPIDEM TARTRATE [Concomitant]
     Active Substance: ZOLPIDEM TARTRATE
     Dosage: 1 FORMULATION 1 DAY
     Dates: start: 20171120
  5. ALPRAZOLAM [Concomitant]
     Active Substance: ALPRAZOLAM
     Dosage: 1 FORMULATION 1 DAY
     Dates: start: 20180115
  6. BACLOFEN [Concomitant]
     Active Substance: BACLOFEN
     Dosage: 1 FORMULATION 1 DAY
     Dates: start: 20171120
  7. CHOLINE ALFOSCERATE [Concomitant]
     Active Substance: CHOLINE ALFOSCERATE
     Dosage: 1 FORMULATION 1 DAY
     Dates: start: 20171120

REACTIONS (1)
  - Ileus [Recovered/Resolved]

NARRATIVE: CASE EVENT DATE: 20180201
